FAERS Safety Report 12607945 (Version 4)
Quarter: 2016Q3

REPORT INFORMATION
  Report Type: Report from Study
  Country: GB (occurrence: GB)
  Receive Date: 20160729
  Receipt Date: 20160929
  Transmission Date: 20161109
  Serious: Yes (Other)
  Sender: FDA-Public Use
  Company Number: GB-JNJFOC-20160715284

PATIENT
  Age: 61 Year
  Sex: Female

DRUGS (1)
  1. STELARA [Suspect]
     Active Substance: USTEKINUMAB
     Indication: PSORIATIC ARTHROPATHY
     Dosage: 45 MG/0.5 ML PRE-FILLED SYRINGE
     Route: 058
     Dates: start: 20160712

REACTIONS (12)
  - Sensory disturbance [Unknown]
  - Hypersensitivity [Recovered/Resolved]
  - Cold sweat [Unknown]
  - Pallor [Unknown]
  - Dizziness [Recovered/Resolved]
  - Feeling hot [Unknown]
  - Dyspnoea [Recovered/Resolved]
  - Fatigue [Not Recovered/Not Resolved]
  - Malaise [Unknown]
  - Heart rate increased [Unknown]
  - Hypertension [Recovered/Resolved]
  - Paraesthesia [Recovered/Resolved]

NARRATIVE: CASE EVENT DATE: 2016
